FAERS Safety Report 7957208-8 (Version None)
Quarter: 2011Q4

REPORT INFORMATION
  Report Type: 
  Country: None (occurrence: None)
  Receive Date: 20111205
  Receipt Date: 20111122
  Transmission Date: 20120403
  Serious: No
  Sender: FDA-Public Use
  Company Number: US-B.I. PHARMACEUTICALS,INC./RIDGEFIELD-2011-BP-18918BP

PATIENT
  Sex: Female

DRUGS (15)
  1. PIROXICAM [Concomitant]
     Indication: RHEUMATOID ARTHRITIS
     Dosage: 20 MG
     Route: 048
     Dates: start: 20060101
  2. MECLIZINE [Concomitant]
     Indication: DIZZINESS
     Route: 048
     Dates: start: 20090101
  3. METHOTREXATE [Concomitant]
     Indication: RHEUMATOID ARTHRITIS
     Route: 048
     Dates: start: 20060101
  4. PRADAXA [Suspect]
     Indication: ATRIAL FIBRILLATION
     Dosage: 300 MG
     Route: 048
     Dates: start: 20110627, end: 20110802
  5. LEXAPRO [Concomitant]
     Dosage: 10 MG
     Route: 048
  6. PRADAXA [Suspect]
     Indication: THROMBOSIS PROPHYLAXIS
  7. HYDROCHLOROTHIAZIDE [Concomitant]
     Indication: HYPERTENSION
     Dosage: 25 MG
     Route: 048
     Dates: start: 20050101
  8. XANAX [Concomitant]
  9. MULTAQ [Concomitant]
     Indication: ATRIAL FIBRILLATION
     Dosage: 800 MG
     Route: 048
     Dates: start: 20110627
  10. OMEPRAZOLE [Concomitant]
     Indication: GASTROOESOPHAGEAL REFLUX DISEASE
     Dosage: 40 MG
     Route: 048
     Dates: start: 20090101
  11. OMEPRAZOLE [Concomitant]
     Indication: ULCER
  12. BENICAR [Concomitant]
     Indication: HYPERTENSION
     Dosage: 20 MG
     Route: 048
     Dates: start: 20050101
  13. FOLIC ACID [Concomitant]
     Indication: ROUTINE HEALTH MAINTENANCE
     Dosage: 1 MG
     Route: 048
     Dates: start: 20060101
  14. ASPIRIN [Concomitant]
     Dosage: 325 MG
  15. METOPROLOL TARTRATE [Concomitant]
     Dosage: 50 MG

REACTIONS (5)
  - NAUSEA [None]
  - FEELING HOT [None]
  - DIARRHOEA [None]
  - FEELING ABNORMAL [None]
  - FLUSHING [None]
